FAERS Safety Report 25999793 (Version 1)
Quarter: 2025Q4

REPORT INFORMATION
  Report Type: Spontaneous
  Country: US (occurrence: US)
  Receive Date: 20251105
  Receipt Date: 20251105
  Transmission Date: 20260117
  Serious: No
  Sender: Tarsus Pharmaceuticals
  Company Number: US-TARSUS PHARMACEUTICALS-TSP-US-2025-001132

PATIENT

DRUGS (1)
  1. XDEMVY [Suspect]
     Active Substance: LOTILANER
     Indication: Ocular demodicosis
     Dosage: UNK
     Route: 047

REACTIONS (4)
  - Ocular hyperaemia [Recovered/Resolved]
  - Swelling of eyelid [Recovered/Resolved]
  - Eyelid exfoliation [Recovered/Resolved]
  - Eye irritation [Recovered/Resolved]
